FAERS Safety Report 4659870-4 (Version None)
Quarter: 2005Q2

REPORT INFORMATION
  Report Type: 
  Country: None (occurrence: None)
  Receive Date: 20050510
  Receipt Date: 20041222
  Transmission Date: 20051028
  Serious: Yes (Death, Hospitalization)
  Sender: FDA-Public Use
  Company Number: PAR_0027_2005

PATIENT
  Age: 90 Year
  Sex: Male

DRUGS (7)
  1. VERAPAMIL [Suspect]
     Indication: PLEURAL EFFUSION
     Dosage: 1 DF ONCE IV
     Route: 042
     Dates: start: 20041215, end: 20041215
  2. VERAPAMIL [Suspect]
     Indication: SUPRAVENTRICULAR TACHYCARDIA
     Dosage: 1 DF ONCE IV
     Route: 042
     Dates: start: 20041215, end: 20041215
  3. CEFOZOPRAN HCL [Suspect]
     Indication: PLEURAL EFFUSION
     Dosage: 2 G QDAY IV
     Route: 042
     Dates: start: 20041215, end: 20041217
  4. CEFOZOPRAN HCL [Suspect]
     Indication: SUPRAVENTRICULAR TACHYCARDIA
     Dosage: 2 G QDAY IV
     Route: 042
     Dates: start: 20041215, end: 20041217
  5. ADENOSINE TRIPHOSPHATE [Suspect]
     Indication: SUPRAVENTRICULAR TACHYCARDIA
     Dosage: 20 MG QDAY IV
     Route: 042
     Dates: start: 20041216, end: 20041216
  6. DISOPYRAMIDE [Suspect]
     Indication: SUPRAVENTRICULAR TACHYCARDIA
     Dosage: 200 MG QDAY PO
     Route: 048
     Dates: start: 20041216, end: 20041216
  7. DISOPYRAMIDE PHOSPHATE [Suspect]
     Indication: SUPRAVENTRICULAR TACHYCARDIA
     Dosage: 1 DF QDAY IV
     Route: 042
     Dates: start: 20041216, end: 20041216

REACTIONS (2)
  - HEPATITIS FULMINANT [None]
  - THERAPY NON-RESPONDER [None]
